FAERS Safety Report 12742447 (Version 1)
Quarter: 2016Q3

REPORT INFORMATION
  Report Type: Spontaneous
  Country: US (occurrence: US)
  Receive Date: 20160914
  Receipt Date: 20160914
  Transmission Date: 20161109
  Serious: No
  Sender: FDA-Public Use
  Company Number: None

PATIENT
  Age: 16 Year
  Sex: Male

DRUGS (2)
  1. CADD SOLIS IV PUMPS [Suspect]
     Active Substance: DEVICE
  2. TPN [Suspect]
     Active Substance: AMINO ACIDS\DEXTROSE\ELECTROLYTES NOS\SOYBEAN OIL

REACTIONS (3)
  - Device defective [None]
  - Incorrect dose administered by device [None]
  - Incorrect drug administration rate [None]

NARRATIVE: CASE EVENT DATE: 20160911
